FAERS Safety Report 8976216 (Version 1)
Quarter: 2012Q4

REPORT INFORMATION
  Report Type: 
  Country: US (occurrence: US)
  Receive Date: 20121219
  Receipt Date: 20121219
  Transmission Date: 20130627
  Serious: No
  Sender: FDA-Public Use
  Company Number: US-AMGEN-USASP2012066674

PATIENT
  Age: 57 Year
  Sex: Female

DRUGS (12)
  1. PROLIA [Suspect]
     Indication: OSTEOPOROSIS POSTMENOPAUSAL
     Dosage: UNK
     Dates: start: 2010
  2. WELLBUTRIN [Concomitant]
     Dosage: 150 mg, tid
  3. PRILOSEC                           /00661201/ [Concomitant]
     Dosage: 40 mg, qd
  4. CRESTOR [Concomitant]
     Dosage: 10 mg, UNK
  5. XANAX [Concomitant]
     Dosage: 0.5 mg, tid
  6. KLONOPIN [Concomitant]
     Dosage: 0.5 mg, bid
  7. BABY ASPIRIN [Concomitant]
     Dosage: UNK UNK, qd
  8. METOPROLOL [Concomitant]
     Indication: CARDIAC DISORDER
     Dosage: 25 mg, qd
  9. TEMAZEPAM [Concomitant]
     Dosage: UNK
  10. PHENERGAN                          /00033001/ [Concomitant]
     Dosage: UNK UNK, q8h
  11. MECLIZINE                          /00072801/ [Concomitant]
     Dosage: 25 mg, q8h
  12. AMOXICILLIN [Concomitant]
     Dosage: 1000 mg, prn

REACTIONS (5)
  - Cataract [Not Recovered/Not Resolved]
  - Hair texture abnormal [Not Recovered/Not Resolved]
  - Musculoskeletal stiffness [Unknown]
  - Myalgia [Unknown]
  - Vision blurred [Not Recovered/Not Resolved]
